FAERS Safety Report 6670621-4 (Version None)
Quarter: 2010Q2

REPORT INFORMATION
  Report Type: 
  Country: None (occurrence: None)
  Receive Date: 20100407
  Receipt Date: 20100331
  Transmission Date: 20101027
  Serious: Yes (Hospitalization)
  Sender: FDA-Public Use
  Company Number: JP-JNJFOC-20100305548

PATIENT
  Age: 64 Year
  Sex: Male

DRUGS (1)
  1. LEVOFLOXACIN [Suspect]
     Indication: PHARYNGITIS
     Route: 048

REACTIONS (3)
  - DYSPHONIA [None]
  - HYPOAESTHESIA [None]
  - RASH GENERALISED [None]
